FAERS Safety Report 9437896 (Version 1)
Quarter: 2013Q3

REPORT INFORMATION
  Report Type: Spontaneous
  Country: US (occurrence: US)
  Receive Date: 20130802
  Receipt Date: 20130802
  Transmission Date: 20140515
  Serious: Yes (Other)
  Sender: FDA-Public Use
  Company Number: US-BRISTOL-MYERS SQUIBB COMPANY-18881060

PATIENT
  Age: 75 Year
  Sex: Male
  Weight: 86.17 kg

DRUGS (4)
  1. WARFARIN SODIUM [Suspect]
     Indication: CEREBROVASCULAR ACCIDENT
     Dates: start: 20130110
  2. GLIPIZIDE [Concomitant]
  3. METFORMIN [Concomitant]
  4. VITAMIN D [Concomitant]

REACTIONS (1)
  - Thrombosis [Not Recovered/Not Resolved]
